FAERS Safety Report 9981801 (Version 1)
Quarter: 2014Q1

REPORT INFORMATION
  Report Type: Spontaneous
  Country: US (occurrence: None)
  Receive Date: 20140127
  Receipt Date: 20140127
  Transmission Date: 20141002
  Serious: No
  Sender: FDA-Public Use
  Company Number: 1195860

PATIENT
  Sex: Female

DRUGS (2)
  1. RITUXAN [Suspect]
     Indication: NON-HODGKIN^S LYMPHOMA
     Dosage: LAST DOSE OF RITUXIMAB WAS ON 05/JUN/2012 AND 27/JUL/2012
  2. BENDAMUSTINA (BENDAMUSTINA) [Concomitant]

REACTIONS (1)
  - Neutropenia [None]
